FAERS Safety Report 19932146 (Version 4)
Quarter: 2024Q2

REPORT INFORMATION
  Report Type: Report from Study
  Country: MX (occurrence: MX)
  Receive Date: 20211007
  Receipt Date: 20240507
  Transmission Date: 20240716
  Serious: Yes (Hospitalization, Disabling, Other)
  Sender: FDA-Public Use
  Company Number: MX-ABBVIE-21K-107-4110273-00

PATIENT
  Age: 62 Year
  Sex: Female
  Weight: 70 kg

DRUGS (2)
  1. HUMIRA [Suspect]
     Active Substance: ADALIMUMAB
     Indication: Rheumatoid arthritis
     Dosage: FORM STRENGTH UNITS:40  MILLIGRAM
     Route: 058
     Dates: start: 20190715
  2. HUMIRA [Suspect]
     Active Substance: ADALIMUMAB
     Dosage: FORM STRENGTH UNITS:40 MILLIGRAM
     Route: 058

REACTIONS (11)
  - Arthropathy [Unknown]
  - Knee arthroplasty [Recovering/Resolving]
  - Influenza [Not Recovered/Not Resolved]
  - Gait disturbance [Unknown]
  - Surgery [Unknown]
  - Device difficult to use [Unknown]
  - Mobility decreased [Unknown]
  - Arthralgia [Unknown]
  - Surgery [Unknown]
  - Arthritis [Not Recovered/Not Resolved]
  - Bacterial infection [Not Recovered/Not Resolved]

NARRATIVE: CASE EVENT DATE: 20201001
